FAERS Safety Report 16053024 (Version 1)
Quarter: 2019Q1

REPORT INFORMATION
  Report Type: Report from Study
  Country: US (occurrence: US)
  Receive Date: 20190308
  Receipt Date: 20190308
  Transmission Date: 20190418
  Serious: Yes (Hospitalization)
  Sender: FDA-Public Use
  Company Number: PHHO2015US013752

PATIENT
  Age: 5 Year
  Sex: Female
  Weight: 23.7 kg

DRUGS (7)
  1. VINCRISTINE [Suspect]
     Active Substance: VINCRISTINE
     Indication: LUNG CONSOLIDATION
     Dosage: UNK
     Route: 065
     Dates: start: 20131231
  2. METHOTREXATE. [Suspect]
     Active Substance: METHOTREXATE
     Indication: LUNG CONSOLIDATION
     Dosage: UNK
     Route: 065
     Dates: start: 20131231
  3. AFINITOR [Suspect]
     Active Substance: EVEROLIMUS
     Indication: ACUTE LYMPHOCYTIC LEUKAEMIA
     Dosage: UNK
     Route: 048
     Dates: start: 20131124
  4. DEXAMETHASONE. [Suspect]
     Active Substance: DEXAMETHASONE
     Indication: LUNG CONSOLIDATION
     Dosage: UNK
     Route: 065
     Dates: start: 20131231
  5. CYCLOPHOSPHAMIDE. [Suspect]
     Active Substance: CYCLOPHOSPHAMIDE
     Indication: LUNG CONSOLIDATION
     Dosage: UNK
     Route: 065
     Dates: start: 20140113
  6. PEG/L-ASPARAGINASE [Suspect]
     Active Substance: PEGASPARGASE
     Indication: LUNG CONSOLIDATION
     Dosage: UNK
     Route: 065
     Dates: start: 20131231
  7. ETOPOSIDE. [Suspect]
     Active Substance: ETOPOSIDE
     Indication: LUNG CONSOLIDATION
     Dosage: UNK
     Route: 065
     Dates: start: 20140113

REACTIONS (1)
  - Febrile neutropenia [Recovered/Resolved]

NARRATIVE: CASE EVENT DATE: 20140122
